FAERS Safety Report 22248055 (Version 1)
Quarter: 2023Q2

REPORT INFORMATION
  Report Type: Spontaneous
  Country: DK (occurrence: DK)
  Receive Date: 20230425
  Receipt Date: 20230425
  Transmission Date: 20230721
  Serious: Yes (Other)
  Sender: FDA-Public Use
  Company Number: None

PATIENT
  Age: 47 Year
  Sex: Female

DRUGS (3)
  1. AVASTIN [Suspect]
     Active Substance: BEVACIZUMAB
     Indication: Ovarian cancer
     Dosage: DOSAGE: UNKNOWN (ACCCORDING TO SCHEMA)?STRENGTH: 25MG/ML?MOST RECENT DOSE: /DEC/2022
     Route: 065
     Dates: start: 20220722
  2. PACLITAXEL [Concomitant]
     Active Substance: PACLITAXEL
     Indication: Ovarian cancer
  3. CARBOPLATIN [Concomitant]
     Active Substance: CARBOPLATIN
     Indication: Ovarian cancer

REACTIONS (7)
  - Rectal haemorrhage [Unknown]
  - Back pain [Unknown]
  - Proctalgia [Unknown]
  - Dysphonia [Unknown]
  - Myalgia [Unknown]
  - Epistaxis [Unknown]
  - Arrhythmia [Unknown]
